FAERS Safety Report 6712525-4 (Version None)
Quarter: 2010Q2

REPORT INFORMATION
  Report Type: 
  Country: None (occurrence: None)
  Receive Date: 20100505
  Receipt Date: 20100505
  Transmission Date: 20101027
  Serious: Yes (Life-Threatening)
  Sender: FDA-Public Use
  Company Number: None

PATIENT
  Sex: Male
  Weight: 61.2356 kg

DRUGS (1)
  1. FENTANYL CITRATE [Suspect]
     Dosage: INJECTION ONE (1)
     Dates: start: 20080726

REACTIONS (5)
  - BALANCE DISORDER [None]
  - HALLUCINATION [None]
  - NASAL DISCOMFORT [None]
  - VERTIGO [None]
  - VISUAL IMPAIRMENT [None]
